FAERS Safety Report 13613440 (Version 2)
Quarter: 2017Q3

REPORT INFORMATION
  Report Type: Report from Study
  Country: AR (occurrence: AR)
  Receive Date: 20170605
  Receipt Date: 20170705
  Transmission Date: 20171127
  Serious: Yes (Other)
  Sender: FDA-Public Use
  Company Number: PHHY2017AR081818

PATIENT

DRUGS (7)
  1. LACOSAMIDE. [Concomitant]
     Active Substance: LACOSAMIDE
     Indication: PRODUCT USED FOR UNKNOWN INDICATION
     Dosage: 6.5 MG/KG (200 MG), QD (EVERY 12 HOURS)
     Route: 048
  2. EVEROLIMUS [Suspect]
     Active Substance: EVEROLIMUS
     Dosage: UNK
     Route: 048
     Dates: start: 20161025
  3. ARIPIPRAZOLE. [Concomitant]
     Active Substance: ARIPIPRAZOLE
     Indication: PRODUCT USED FOR UNKNOWN INDICATION
     Dosage: 10 MG, UNK
     Route: 065
  4. EVEROLIMUS [Suspect]
     Active Substance: EVEROLIMUS
     Indication: EPILEPSY
     Route: 048
     Dates: start: 201505, end: 20160604
  5. METHYLPHENIDATE HYDROCHLORIDE. [Suspect]
     Active Substance: METHYLPHENIDATE HYDROCHLORIDE
     Indication: PRODUCT USED FOR UNKNOWN INDICATION
     Dosage: 54 MG, QD
     Route: 048
  6. CLOBAZAM [Concomitant]
     Active Substance: CLOBAZAM
     Indication: PRODUCT USED FOR UNKNOWN INDICATION
     Dosage: 15 MG, QD
     Route: 065
  7. EVEROLIMUS [Suspect]
     Active Substance: EVEROLIMUS
     Dosage: 15 MG, QD
     Route: 048
     Dates: start: 20161130

REACTIONS (12)
  - Seizure [Not Recovered/Not Resolved]
  - Metabolic acidosis [Unknown]
  - Skin infection [Unknown]
  - Diarrhoea [Unknown]
  - Weight increased [Unknown]
  - Laceration [Recovered/Resolved]
  - Stomatitis [Unknown]
  - Abnormal behaviour [Unknown]
  - Epilepsy [Not Recovered/Not Resolved]
  - Cognitive disorder [Unknown]
  - Skin abrasion [Recovered/Resolved]
  - Aggression [Unknown]
